FAERS Safety Report 4518394-5 (Version None)
Quarter: 2004Q4

REPORT INFORMATION
  Report Type: 
  Country: None (occurrence: None)
  Receive Date: 20041203
  Receipt Date: 20040519
  Transmission Date: 20050328
  Serious: Yes (Hospitalization)
  Sender: FDA-Public Use
  Company Number: PHBS2004JP06804

PATIENT
  Age: 63 Year
  Sex: Female

DRUGS (5)
  1. GLEEVEC [Suspect]
     Indication: CHRONIC MYELOID LEUKAEMIA
     Dosage: 100 MG, QD
     Route: 048
     Dates: start: 20030807, end: 20030817
  2. GLEEVEC [Suspect]
     Dosage: 100 MG/D
     Route: 048
     Dates: start: 20031017, end: 20031026
  3. GLEEVEC [Suspect]
     Dosage: 200 MG/D
     Route: 048
     Dates: start: 20031027, end: 20031109
  4. GLEEVEC [Suspect]
     Dosage: 300 MG/DAY
     Route: 048
     Dates: start: 20031110
  5. CELESTAMINE TAB [Concomitant]
     Dosage: 2 DF, QD
     Route: 048

REACTIONS (6)
  - CONJUNCTIVAL HYPERAEMIA [None]
  - ERYTHEMA [None]
  - ERYTHEMA MULTIFORME [None]
  - EYELID OEDEMA [None]
  - GENERALISED OEDEMA [None]
  - PYREXIA [None]
